FAERS Safety Report 5713440-5 (Version None)
Quarter: 2008Q2

REPORT INFORMATION
  Report Type: 
  Country: None (occurrence: None)
  Receive Date: 20080422
  Receipt Date: 20080326
  Transmission Date: 20081010
  Serious: No
  Sender: FDA-Public Use
  Company Number: US-BOEHRINGER INGELHEIM GMBH, GERMANY-2008-BP-04677BP

PATIENT
  Sex: Male

DRUGS (5)
  1. SPIRIVA [Suspect]
     Indication: EMPHYSEMA
     Route: 055
     Dates: start: 20071201
  2. ALBUTEROL [Concomitant]
     Indication: EMPHYSEMA
  3. FORADIL [Concomitant]
     Indication: EMPHYSEMA
  4. ADVAIR HFA [Concomitant]
     Indication: EMPHYSEMA
  5. PREDNISONE [Concomitant]
     Indication: EMPHYSEMA

REACTIONS (1)
  - DYSPNOEA [None]
